FAERS Safety Report 6381944-0 (Version None)
Quarter: 2009Q3

REPORT INFORMATION
  Report Type: 
  Country: None (occurrence: None)
  Receive Date: 20090930
  Receipt Date: 20090908
  Transmission Date: 20100115
  Serious: No
  Sender: FDA-Public Use
  Company Number: US-TYCO HEALTHCARE/MALLINCKRODT-T200901709

PATIENT
  Sex: Female

DRUGS (2)
  1. HYDROMORPHONE HCL [Suspect]
     Indication: PAIN
     Dosage: 4 MG, QID
     Dates: start: 20081101
  2. OXYCONTIN [Suspect]
     Indication: PAIN

REACTIONS (6)
  - BACK PAIN [None]
  - CONSTIPATION [None]
  - DECREASED APPETITE [None]
  - DRUG DEPENDENCE [None]
  - DRUG EFFECT DECREASED [None]
  - WEIGHT DECREASED [None]
